FAERS Safety Report 15602737 (Version 2)
Quarter: 2019Q1

REPORT INFORMATION
  Report Type: Spontaneous
  Country: US (occurrence: US)
  Receive Date: 20181109
  Receipt Date: 20190128
  Transmission Date: 20190417
  Serious: Yes (Other)
  Sender: FDA-Public Use
  Company Number: US-SA-2018SA307054

PATIENT
  Age: 51 Year
  Sex: Female
  Weight: 106 kg

DRUGS (4)
  1. METOPROLOL. [Concomitant]
     Active Substance: METOPROLOL
     Dosage: UNK UNK, UNK
     Dates: start: 20040101
  2. TAXOTERE [Suspect]
     Active Substance: DOCETAXEL
     Dosage: 175 MG, Q3W
     Route: 042
     Dates: start: 20110506, end: 20110506
  3. TAXOTERE [Suspect]
     Active Substance: DOCETAXEL
     Indication: BREAST CANCER FEMALE
     Dosage: 175 MG, Q3W
     Route: 042
     Dates: start: 20110304, end: 20110304
  4. PARAPLATIN [Concomitant]
     Active Substance: CARBOPLATIN
     Dosage: 576 MG, UNK

REACTIONS (2)
  - Alopecia [Recovering/Resolving]
  - Psychological trauma [Unknown]

NARRATIVE: CASE EVENT DATE: 20110401
